FAERS Safety Report 4926876-7 (Version None)
Quarter: 2006Q1

REPORT INFORMATION
  Report Type: 
  Country: None (occurrence: None)
  Receive Date: 20060228
  Receipt Date: 20050706
  Transmission Date: 20060701
  Serious: No
  Sender: FDA-Public Use
  Company Number: US-GLAXOSMITHKLINE-A0565556A

PATIENT
  Age: 41 Year
  Sex: Female

DRUGS (5)
  1. LAMICTAL [Suspect]
     Indication: BIPOLAR II DISORDER
     Dosage: 200MG PER DAY
     Route: 048
     Dates: start: 20041004, end: 20050523
  2. KEFLEX [Concomitant]
     Route: 048
     Dates: start: 20050501, end: 20050515
  3. EFFEXOR [Concomitant]
     Dosage: 37.5MG PER DAY
     Route: 048
     Dates: start: 20040801
  4. KLONOPIN [Concomitant]
     Route: 048
     Dates: start: 20040801
  5. ZITHROMAX [Concomitant]

REACTIONS (2)
  - CANDIDIASIS [None]
  - CONTUSION [None]
